FAERS Safety Report 7909913-7 (Version None)
Quarter: 2011Q4

REPORT INFORMATION
  Report Type: 
  Country: None (occurrence: None)
  Receive Date: 20111111
  Receipt Date: 20111102
  Transmission Date: 20120403
  Serious: Yes (Hospitalization)
  Sender: FDA-Public Use
  Company Number: US-JNJFOC-20111101302

PATIENT
  Sex: Male
  Weight: 124.74 kg

DRUGS (2)
  1. REMICADE [Suspect]
     Route: 042
     Dates: start: 20000401, end: 20110101
  2. REMICADE [Suspect]
     Indication: RHEUMATOID ARTHRITIS
     Route: 042
     Dates: start: 20110101

REACTIONS (3)
  - FUNGAL INFECTION [None]
  - PNEUMONIA [None]
  - PULMONARY MASS [None]
